FAERS Safety Report 17104060 (Version 1)
Quarter: 2019Q4

REPORT INFORMATION
  Report Type: Spontaneous
  Country: GB (occurrence: GB)
  Receive Date: 20191203
  Receipt Date: 20191203
  Transmission Date: 20200122
  Serious: Yes (Other)
  Sender: FDA-Public Use
  Company Number: GB-DRREDDYS-GER/UKI/19/0116598

PATIENT
  Age: 52 Year
  Sex: Male
  Weight: 65 kg

DRUGS (2)
  1. CIPROFLOXACIN. [Suspect]
     Active Substance: CIPROFLOXACIN
     Indication: OTITIS MEDIA
     Route: 048
     Dates: start: 20061208, end: 20061210
  2. QUININE SULPHATE [Concomitant]
     Active Substance: QUININE SULFATE
     Indication: MUSCLE SPASMS

REACTIONS (1)
  - Condition aggravated [Recovered/Resolved]

NARRATIVE: CASE EVENT DATE: 20061208
